FAERS Safety Report 7161368-9 (Version None)
Quarter: 2010Q4

REPORT INFORMATION
  Report Type: 
  Country: None (occurrence: None)
  Receive Date: 20101215
  Receipt Date: 20101201
  Transmission Date: 20110411
  Serious: Yes (Life-Threatening, Hospitalization)
  Sender: FDA-Public Use
  Company Number: CH-RANBAXY-2010RR-40048

PATIENT
  Age: 77 Year
  Sex: Female

DRUGS (10)
  1. TAVANIC [Suspect]
     Indication: OSTEOMYELITIS
     Dosage: 500 MG, BID
     Route: 048
     Dates: start: 20101101, end: 20101102
  2. LISINOPRIL [Suspect]
     Dosage: 5 MG, UNK
     Route: 048
     Dates: end: 20101102
  3. ZOFRAN [Suspect]
     Indication: NAUSEA
     Dosage: 4 MG, UNK
     Route: 042
     Dates: start: 20100928, end: 20101102
  4. ZOFRAN [Suspect]
     Indication: VOMITING
  5. CLEXANE [Concomitant]
     Dosage: UNK
     Dates: start: 20100929
  6. FLOXAPEN [Concomitant]
     Dosage: UNK
     Route: 042
     Dates: start: 20101014, end: 20101101
  7. RIMACTANE [Concomitant]
     Dosage: UNK
     Dates: start: 20101028
  8. AMILORIDE HYDROCHLORIDE/HCT [Concomitant]
  9. PREDNISONE [Concomitant]
     Indication: AUTOIMMUNE HEPATITIS
     Dosage: UNK
     Dates: start: 20020101
  10. LASIX [Concomitant]

REACTIONS (2)
  - ANGIOEDEMA [None]
  - TYPE I HYPERSENSITIVITY [None]
